FAERS Safety Report 4685787-5 (Version None)
Quarter: 2005Q2

REPORT INFORMATION
  Report Type: 
  Country: None (occurrence: None)
  Receive Date: 20050607
  Receipt Date: 20050607
  Transmission Date: 20051028
  Serious: Yes (Hospitalization)
  Sender: FDA-Public Use
  Company Number: None

PATIENT
  Age: 37 Year
  Sex: Male

DRUGS (2)
  1. VANCOMYCIN [Suspect]
     Indication: PATHOGEN RESISTANCE
     Dosage: 1 GM EVERY 12 HRS
     Dates: start: 20041121, end: 20041125
  2. VANCOMYCIN [Suspect]
     Indication: STAPHYLOCOCCAL SEPSIS
     Dosage: 1 GM EVERY 12 HRS
     Dates: start: 20041121, end: 20041125

REACTIONS (1)
  - STEVENS-JOHNSON SYNDROME [None]
